FAERS Safety Report 11338618 (Version 1)
Quarter: 2015Q3

REPORT INFORMATION
  Report Type: Spontaneous
  Country: US (occurrence: US)
  Receive Date: 20150803
  Receipt Date: 20150803
  Transmission Date: 20151125
  Serious: Yes (Other)
  Sender: FDA-Public Use
  Company Number: US-ELI_LILLY_AND_COMPANY-US200711005128

PATIENT
  Sex: Female

DRUGS (1)
  1. STRATTERA [Suspect]
     Active Substance: ATOMOXETINE HYDROCHLORIDE
     Indication: FIBROMYALGIA
     Dosage: 40 MG, 2/D
     Route: 048
     Dates: end: 200711

REACTIONS (2)
  - Myocardial infarction [Unknown]
  - Migraine [Unknown]

NARRATIVE: CASE EVENT DATE: 200711
